FAERS Safety Report 10450408 (Version 1)
Quarter: 2014Q3

REPORT INFORMATION
  Report Type: Spontaneous
  Country: US (occurrence: None)
  Receive Date: 20140911
  Receipt Date: 20140911
  Transmission Date: 20150326
  Serious: Yes (Other)
  Sender: FDA-Public Use
  Company Number: None

PATIENT
  Age: 69 Year
  Sex: Male

DRUGS (20)
  1. XTANDI [Suspect]
     Active Substance: ENZALUTAMIDE
     Indication: PROSTATE CANCER
     Route: 048
     Dates: start: 201405, end: 201408
  2. FLONASE [Concomitant]
     Active Substance: FLUTICASONE PROPIONATE
  3. AMBIEN [Concomitant]
     Active Substance: ZOLPIDEM TARTRATE
  4. LUPRON DEPOT [Concomitant]
     Active Substance: LEUPROLIDE ACETATE
  5. SYNTHROID [Concomitant]
     Active Substance: LEVOTHYROXINE SODIUM
  6. XANAX [Concomitant]
     Active Substance: ALPRAZOLAM
  7. LOSARTAN [Concomitant]
     Active Substance: LOSARTAN
  8. OXYMETAZOLIN [Concomitant]
  9. SIMVASTATIN. [Concomitant]
     Active Substance: SIMVASTATIN
  10. IBUPROFEN. [Concomitant]
     Active Substance: IBUPROFEN
  11. FLAXSEED [Concomitant]
     Active Substance: FLAX SEED
  12. XGEVA [Concomitant]
     Active Substance: DENOSUMAB
  13. ASPIRIN. [Concomitant]
     Active Substance: ASPIRIN
  14. KLOR-CON [Concomitant]
     Active Substance: POTASSIUM CHLORIDE
  15. XTANDI [Concomitant]
     Active Substance: ENZALUTAMIDE
  16. VITAMIN D [Concomitant]
     Active Substance: CHOLECALCIFEROL
  17. AMLODIPINE POW BESYLATE [Concomitant]
  18. CALCIUM [Concomitant]
     Active Substance: CALCIUM
  19. NORTRIPTYLIN [Concomitant]
     Active Substance: NORTRIPTYLINE
  20. COLACE [Concomitant]
     Active Substance: DOCUSATE SODIUM

REACTIONS (1)
  - Disease progression [None]

NARRATIVE: CASE EVENT DATE: 20140910
